FAERS Safety Report 7617763-4 (Version None)
Quarter: 2011Q3

REPORT INFORMATION
  Report Type: 
  Country: None (occurrence: None)
  Receive Date: 20110718
  Receipt Date: 20110708
  Transmission Date: 20111222
  Serious: Yes (Other)
  Sender: FDA-Public Use
  Company Number: US-JNJFOC-20110704121

PATIENT
  Sex: Male

DRUGS (8)
  1. FUROSEMIDE [Concomitant]
     Route: 065
  2. INVEGA SUSTENNA [Suspect]
     Indication: PRODUCT USED FOR UNKNOWN INDICATION
     Route: 030
     Dates: start: 20110603
  3. LEVOTHYROXINE SODIUM [Concomitant]
     Route: 065
  4. TOPAMAX [Suspect]
     Indication: PRODUCT USED FOR UNKNOWN INDICATION
     Route: 048
  5. SEROQUEL [Concomitant]
     Route: 065
  6. FISH OIL [Concomitant]
     Route: 065
  7. HYDROCODONE [Concomitant]
     Route: 065
  8. IBUPROFEN [Concomitant]
     Route: 065

REACTIONS (4)
  - FALL [None]
  - JOINT INJURY [None]
  - WEIGHT INCREASED [None]
  - CELLULITIS [None]
